FAERS Safety Report 25524529 (Version 2)
Quarter: 2025Q3

REPORT INFORMATION
  Report Type: Spontaneous
  Country: US (occurrence: US)
  Receive Date: 20250707
  Receipt Date: 20250731
  Transmission Date: 20251021
  Serious: No
  Sender: MYLAN
  Company Number: US-MYLANLABS-2025M1053640

PATIENT
  Age: 54 Year
  Sex: Female
  Weight: 77.11 kg

DRUGS (8)
  1. ESTRADIOL TRANSDERMAL SYSTEM [Suspect]
     Active Substance: ESTRADIOL
     Indication: Menopausal symptoms
     Dosage: 0.1 MILLIGRAM, QD (PER DAY, TWICE WEEKLY)
     Dates: start: 20250607
  2. ESTRADIOL TRANSDERMAL SYSTEM [Suspect]
     Active Substance: ESTRADIOL
     Dosage: 0.1 MILLIGRAM, QD (PER DAY, TWICE WEEKLY)
     Route: 062
     Dates: start: 20250607
  3. ESTRADIOL TRANSDERMAL SYSTEM [Suspect]
     Active Substance: ESTRADIOL
     Dosage: 0.1 MILLIGRAM, QD (PER DAY, TWICE WEEKLY)
     Route: 062
     Dates: start: 20250607
  4. ESTRADIOL TRANSDERMAL SYSTEM [Suspect]
     Active Substance: ESTRADIOL
     Dosage: 0.1 MILLIGRAM, QD (PER DAY, TWICE WEEKLY)
     Dates: start: 20250607
  5. PROGESTERONE [Concomitant]
     Active Substance: PROGESTERONE
     Indication: Menopausal symptoms
     Dosage: UNK, QD (PILL, ONCE A DAY)
  6. PROGESTERONE [Concomitant]
     Active Substance: PROGESTERONE
     Dosage: UNK, QD (PILL, ONCE A DAY)
     Route: 065
  7. PROGESTERONE [Concomitant]
     Active Substance: PROGESTERONE
     Dosage: UNK, QD (PILL, ONCE A DAY)
     Route: 065
  8. PROGESTERONE [Concomitant]
     Active Substance: PROGESTERONE
     Dosage: UNK, QD (PILL, ONCE A DAY)

REACTIONS (4)
  - Application site rash [Unknown]
  - Application site pain [Not Recovered/Not Resolved]
  - Application site erythema [Not Recovered/Not Resolved]
  - Application site pruritus [Not Recovered/Not Resolved]

NARRATIVE: CASE EVENT DATE: 20250607
